FAERS Safety Report 5808861-6 (Version None)
Quarter: 2008Q3

REPORT INFORMATION
  Report Type: 
  Country: None (occurrence: None)
  Receive Date: 20080714
  Receipt Date: 20080707
  Transmission Date: 20090109
  Serious: Yes (Hospitalization)
  Sender: FDA-Public Use
  Company Number: US-ABBOTT-08P-163-0460934-00

PATIENT
  Age: 14 Year
  Sex: Female

DRUGS (4)
  1. LEXAPRO [Suspect]
     Indication: DEPRESSION
  2. LEXAPRO [Suspect]
     Indication: INTENTIONAL OVERDOSE
  3. ARIPIPRAZOLE [Concomitant]
     Indication: DRUG USE FOR UNKNOWN INDICATION
     Dosage: NOT REPORTED
  4. METHYLPHENIDATE HCL [Concomitant]
     Indication: DRUG USE FOR UNKNOWN INDICATION
     Dosage: NOT REPORTED

REACTIONS (2)
  - ELECTROCARDIOGRAM QT PROLONGED [None]
  - INTENTIONAL OVERDOSE [None]
